FAERS Safety Report 14637417 (Version 1)
Quarter: 2018Q1

REPORT INFORMATION
  Report Type: Spontaneous
  Country: US (occurrence: US)
  Receive Date: 20180314
  Receipt Date: 20180314
  Transmission Date: 20180509
  Serious: No
  Sender: FDA-Public Use
  Company Number: US-ALLERGAN-1804351US

PATIENT
  Sex: Female

DRUGS (2)
  1. WARFARIN [Concomitant]
     Active Substance: WARFARIN
     Indication: AORTIC VALVE REPLACEMENT
     Dosage: 5MG FOR 6 DAYS OF A WEEK AND 2.5 MG ON 7TH DAY
     Route: 048
     Dates: start: 2014
  2. NORCO [Suspect]
     Active Substance: ACETAMINOPHEN\HYDROCODONE BITARTRATE
     Indication: PAIN
     Dosage: UNK
     Route: 048
     Dates: start: 2014

REACTIONS (1)
  - Abdominal discomfort [Recovered/Resolved]
